FAERS Safety Report 24011287 (Version 1)
Quarter: 2024Q2

REPORT INFORMATION
  Report Type: Other
  Country: GB (occurrence: GB)
  Receive Date: 20240625
  Receipt Date: 20240625
  Transmission Date: 20240715
  Serious: Yes (Other)
  Sender: FDA-Public Use
  Company Number: None

PATIENT

DRUGS (6)
  1. EZETIMIBE [Suspect]
     Active Substance: EZETIMIBE
     Indication: Product used for unknown indication
     Dosage: UNK
     Route: 065
  2. ATORVASTATIN [Concomitant]
     Active Substance: ATORVASTATIN
     Indication: Preventive surgery
     Dosage: 20 MILLIGRAM
     Route: 065
     Dates: start: 20140921
  3. BISOPROLOL [Concomitant]
     Active Substance: BISOPROLOL\BISOPROLOL FUMARATE
     Indication: Preventive surgery
     Dosage: 1.25 MILLIGRAM
     Route: 065
     Dates: start: 20140921
  4. ESOMEPRAZOLE [Concomitant]
     Active Substance: ESOMEPRAZOLE
     Indication: Preventive surgery
     Dosage: 20 MILLIGRAM
     Route: 065
     Dates: start: 20140921
  5. ASPIRIN [Concomitant]
     Active Substance: ASPIRIN
     Indication: Preventive surgery
     Dosage: 75 MILLIGRAM
     Route: 065
     Dates: start: 20140921
  6. METFORMIN [Concomitant]
     Active Substance: METFORMIN HYDROCHLORIDE
     Indication: Preventive surgery
     Dosage: 500 MILLIGRAM, BID (500 MGS X 2 DAILY)
     Route: 065
     Dates: start: 20140921

REACTIONS (6)
  - Extrasystoles [Not Recovered/Not Resolved]
  - Myalgia [Not Recovered/Not Resolved]
  - Muscular weakness [Unknown]
  - Nausea [Recovered/Resolved]
  - Fatigue [Unknown]
  - Medication error [Unknown]

NARRATIVE: CASE EVENT DATE: 20240430
